FAERS Safety Report 8774924 (Version 3)
Quarter: 2013Q1

REPORT INFORMATION
  Report Type: Spontaneous
  Country: US (occurrence: US)
  Receive Date: 20120910
  Receipt Date: 20130214
  Transmission Date: 20140127
  Serious: Yes (Other)
  Sender: FDA-Public Use
  Company Number: US-BAYER-2012-093404

PATIENT
  Age: 29 Year
  Sex: Female
  Weight: 81.63 kg

DRUGS (6)
  1. OCELLA [Suspect]
     Indication: CONTRACEPTION
     Dosage: UNK
     Dates: start: 20080811, end: 20080822
  2. YASMIN [Suspect]
  3. CELEBREX [Concomitant]
  4. HYDROCODONE/ACETAMINOPHEN [Concomitant]
  5. HYDROCODONE [Concomitant]
     Indication: PAIN
     Dosage: 5 MG, PRN
     Route: 048
     Dates: start: 20080903
  6. PLAQUENIL [Concomitant]
     Dosage: UNK
     Dates: start: 2008

REACTIONS (5)
  - Deep vein thrombosis [None]
  - Injury [None]
  - Pain [None]
  - Pain [None]
  - Emotional distress [None]
